FAERS Safety Report 20577744 (Version 2)
Quarter: 2022Q2

REPORT INFORMATION
  Report Type: Report from Study
  Country: US (occurrence: US)
  Receive Date: 20220310
  Receipt Date: 20220402
  Transmission Date: 20220721
  Serious: Yes (Other)
  Sender: FDA-Public Use
  Company Number: US-TEVA-2022-US-2014276

PATIENT
  Age: 42 Year
  Sex: Female

DRUGS (7)
  1. CLARAVIS [Suspect]
     Active Substance: ISOTRETINOIN
     Route: 065
  2. ESCITALOPRAM [Concomitant]
     Active Substance: ESCITALOPRAM OXALATE
  3. HYDROXYZINE [Concomitant]
     Active Substance: HYDROXYZINE HYDROCHLORIDE
  4. TRAZODONE [Concomitant]
     Active Substance: TRAZODONE HYDROCHLORIDE
  5. OLANZAPINE [Concomitant]
     Active Substance: OLANZAPINE
  6. Topical tretinoin [Concomitant]
  7. Topical clindamycin [Concomitant]

REACTIONS (2)
  - Psychotic disorder [Recovered/Resolved with Sequelae]
  - Delusion [Unknown]

NARRATIVE: CASE EVENT DATE: 20220209
